FAERS Safety Report 8305348-6 (Version None)
Quarter: 2012Q2

REPORT INFORMATION
  Report Type: 
  Country: None (occurrence: None)
  Receive Date: 20120423
  Receipt Date: 20120413
  Transmission Date: 20120825
  Serious: Yes (Hospitalization)
  Sender: FDA-Public Use
  Company Number: JP-ASTRAZENECA-2012SE22688

PATIENT
  Age: 92 Year
  Sex: Female

DRUGS (5)
  1. NEXIUM [Suspect]
     Indication: GASTROOESOPHAGEAL REFLUX DISEASE
     Route: 048
     Dates: start: 20120116
  2. FAMOTIDINE [Suspect]
     Indication: GASTRIC ULCER
     Route: 048
     Dates: start: 20111223
  3. CANDESARTAN CILEXETIL [Suspect]
     Indication: HYPERTENSION
     Route: 048
     Dates: start: 20111223
  4. MUCOSTA [Suspect]
     Indication: GASTRIC ULCER
     Route: 048
     Dates: start: 20120124, end: 20120128
  5. BONOTEO [Suspect]
     Indication: OSTEOPOROSIS
     Route: 048
     Dates: start: 20111209, end: 20120127

REACTIONS (1)
  - INTERSTITIAL LUNG DISEASE [None]
